FAERS Safety Report 6558104-3 (Version None)
Quarter: 2010Q1

REPORT INFORMATION
  Report Type: 
  Country: None (occurrence: None)
  Receive Date: 20100129
  Receipt Date: 20100125
  Transmission Date: 20100710
  Serious: Yes (Other)
  Sender: FDA-Public Use
  Company Number: A0841235A

PATIENT
  Age: 80 Year
  Sex: Female

DRUGS (13)
  1. ADVAIR DISKUS 100/50 [Suspect]
     Indication: CHRONIC OBSTRUCTIVE PULMONARY DISEASE
     Dosage: 1PUFF PER DAY
     Route: 055
     Dates: start: 20090301
  2. ZOCOR [Concomitant]
  3. SYNTHROID [Concomitant]
  4. TRIAMTERENE AND HYDROCHLOROTHIAZIDE [Concomitant]
  5. CALTRATE PLUS D [Concomitant]
  6. CENTRUM SILVER [Concomitant]
  7. ASPIRIN [Concomitant]
  8. NEXIUM [Concomitant]
  9. ATARAX [Concomitant]
  10. SINGULAIR [Concomitant]
  11. ACETAMINOPHEN [Concomitant]
  12. UNKNOWN DRUG [Concomitant]
  13. MAGNESIUM [Concomitant]

REACTIONS (2)
  - CATARACT [None]
  - VISUAL IMPAIRMENT [None]
